FAERS Safety Report 11307587 (Version 1)
Quarter: 2015Q3

REPORT INFORMATION
  Report Type: Spontaneous
  Country: US (occurrence: US)
  Receive Date: 20150723
  Receipt Date: 20150723
  Transmission Date: 20151125
  Serious: No
  Sender: FDA-Public Use
  Company Number: US-BAUSCH-SP09155

PATIENT
  Sex: Male
  Weight: 72.64 kg

DRUGS (4)
  1. XIFAXAN [Suspect]
     Active Substance: RIFAXIMIN
     Indication: COMA
  2. LACTULOSE. [Concomitant]
     Active Substance: LACTULOSE
     Indication: HEPATIC ENCEPHALOPATHY
  3. LACTULOSE. [Concomitant]
     Active Substance: LACTULOSE
     Indication: COMA
  4. XIFAXAN [Suspect]
     Active Substance: RIFAXIMIN
     Indication: HEPATIC ENCEPHALOPATHY
     Route: 048
     Dates: start: 201306

REACTIONS (5)
  - Hepatic enzyme increased [Not Recovered/Not Resolved]
  - Fall [Not Recovered/Not Resolved]
  - Malaise [Not Recovered/Not Resolved]
  - Weight increased [Not Recovered/Not Resolved]
  - Dizziness [Not Recovered/Not Resolved]

NARRATIVE: CASE EVENT DATE: 2013
